FAERS Safety Report 20941193 (Version 2)
Quarter: 2022Q3

REPORT INFORMATION
  Report Type: Spontaneous
  Country: JP (occurrence: JP)
  Receive Date: 20220609
  Receipt Date: 20220627
  Transmission Date: 20221027
  Serious: Yes (Death)
  Sender: FDA-Public Use
  Company Number: JP-NOVARTISPH-NVSJ2022JP091884

PATIENT
  Age: 87 Year
  Sex: Male

DRUGS (1)
  1. ENTRESTO [Suspect]
     Active Substance: SACUBITRIL\VALSARTAN
     Indication: Cardiac failure
     Dosage: UNK
     Route: 048

REACTIONS (1)
  - Pneumonia aspiration [Fatal]
